FAERS Safety Report 9260205 (Version 2)
Quarter: 2013Q2

REPORT INFORMATION
  Report Type: Spontaneous
  Country: US (occurrence: US)
  Receive Date: 20130429
  Receipt Date: 20130611
  Transmission Date: 20140414
  Serious: No
  Sender: FDA-Public Use
  Company Number: US-PFIZER INC-2013130598

PATIENT
  Sex: Female

DRUGS (2)
  1. LYRICA [Suspect]
     Indication: PROCEDURAL PAIN
     Dosage: UNK
     Dates: start: 20130423
  2. LYRICA [Suspect]
     Indication: SPINAL FUSION SURGERY

REACTIONS (4)
  - Fatigue [Unknown]
  - Hunger [Unknown]
  - Increased appetite [Unknown]
  - Hypersensitivity [Unknown]
